FAERS Safety Report 9023368 (Version 1)
Quarter: 2013Q1

REPORT INFORMATION
  Report Type: Report from Study
  Country: CR (occurrence: CR)
  Receive Date: 20130117
  Receipt Date: 20130117
  Transmission Date: 20140127
  Serious: Yes (Death)
  Sender: FDA-Public Use
  Company Number: CR-ROCHE-1180476

PATIENT
  Age: 77 None
  Sex: Female

DRUGS (1)
  1. BONVIVA [Suspect]
     Indication: OSTEOPOROSIS
     Route: 048
     Dates: start: 20111122, end: 20120830

REACTIONS (3)
  - Myocardial infarction [Fatal]
  - Pulmonary thrombosis [Fatal]
  - Dyspnoea [Fatal]
